FAERS Safety Report 9562194 (Version 1)
Quarter: 2013Q3

REPORT INFORMATION
  Report Type: Spontaneous
  Country: BR (occurrence: BR)
  Receive Date: 20130927
  Receipt Date: 20130927
  Transmission Date: 20140515
  Serious: Yes (Other)
  Sender: FDA-Public Use
  Company Number: PHHY2013BR105875

PATIENT
  Sex: 0

DRUGS (5)
  1. SANDOSTATIN LAR [Suspect]
     Indication: ACROMEGALY
     Dosage: 30 MG (1 AMPOULE), MONTHLY
     Dates: start: 201102
  2. SIMVASTATIN [Concomitant]
     Indication: BLOOD CHOLESTEROL
     Dosage: UNK UKN, UNK
     Dates: start: 2009
  3. LOSARTAN [Concomitant]
     Indication: HYPERTENSION
     Dosage: 50 MG, 2 TABLETS DAILY
     Route: 048
     Dates: start: 2012
  4. PREDNISONE [Concomitant]
     Dosage: 5 MG, 1 TABLET DAILY
     Dates: start: 2012
  5. OMEPRAZOLE [Concomitant]
     Indication: ABDOMINAL DISCOMFORT
     Dosage: 20 MG, 1 TABLET DAILY
     Route: 048
     Dates: start: 2009

REACTIONS (11)
  - Blood cortisol decreased [Recovered/Resolved]
  - Convulsion [Recovered/Resolved]
  - Hypothyroidism [Not Recovered/Not Resolved]
  - Blood pressure abnormal [Recovered/Resolved]
  - Nail discomfort [Not Recovered/Not Resolved]
  - Fatigue [Not Recovered/Not Resolved]
  - Memory impairment [Not Recovered/Not Resolved]
  - Platelet count decreased [Not Recovered/Not Resolved]
  - Alopecia [Recovering/Resolving]
  - Headache [Recovered/Resolved]
  - Nausea [Recovered/Resolved]
